FAERS Safety Report 7950833-X (Version None)
Quarter: 2011Q4

REPORT INFORMATION
  Report Type: 
  Country: None (occurrence: None)
  Receive Date: 20111201
  Receipt Date: 20111128
  Transmission Date: 20120403
  Serious: No
  Sender: FDA-Public Use
  Company Number: US-PFIZER INC-2011290203

PATIENT
  Sex: Male
  Weight: 92 kg

DRUGS (1)
  1. IBUPROFEN (ADVIL) [Suspect]
     Indication: PAIN
     Dosage: UNK, AS NEEDED
     Route: 048

REACTIONS (3)
  - LIP PAIN [None]
  - HYPOAESTHESIA ORAL [None]
  - GLOSSODYNIA [None]
